FAERS Safety Report 10255495 (Version 1)
Quarter: 2014Q2

REPORT INFORMATION
  Report Type: Spontaneous
  Country: US (occurrence: None)
  Receive Date: 20140522
  Receipt Date: 20140522
  Transmission Date: 20141212
  Serious: No
  Sender: FDA-Public Use
  Company Number: 1000065953

PATIENT
  Age: 70 Year
  Sex: Female

DRUGS (15)
  1. TUDORZA PRESSAIR (ACLIDINIUM BROMIDE) (400 MICROGRAM, POWDER) [Suspect]
     Indication: CHRONIC OBSTRUCTIVE PULMONARY DISEASE
     Dosage: 800 UG (400 UG, 2 IN 1 D)
     Route: 048
     Dates: start: 201401, end: 201401
  2. MVI (VITAMINS NOS) [Concomitant]
  3. CLARITIN [Concomitant]
  4. ASPIRIN (ACETYLSALICYLIC ACID) [Concomitant]
  5. ALEVE (NAPROXEN SODIUM) [Concomitant]
  6. COREG (CARVEDILOL) [Concomitant]
  7. SYMBICORT (BUDESONIDE W/FORMOTEROL FUMARATE) [Concomitant]
  8. LASIX (FUROSEMIDE) [Concomitant]
  9. THYROID MEDICATION NOS [Concomitant]
  10. LOSARTAN [Concomitant]
  11. POTASSIUM CHLORIDE [Concomitant]
  12. SERTRALINE [Concomitant]
  13. SPIRONOLACTONE [Concomitant]
  14. ALBUTEROL [Concomitant]
  15. OXYGEN [Concomitant]

REACTIONS (2)
  - Wheezing [None]
  - Drug ineffective [None]
